FAERS Safety Report 7732504-8 (Version None)
Quarter: 2011Q3

REPORT INFORMATION
  Report Type: 
  Country: None (occurrence: None)
  Receive Date: 20110906
  Receipt Date: 20110831
  Transmission Date: 20111222
  Serious: Yes (Hospitalization)
  Sender: FDA-Public Use
  Company Number: AU-AMGEN-AUSCT2011027705

PATIENT
  Age: 69 Year
  Sex: Male
  Weight: 98 kg

DRUGS (19)
  1. CANDESARTAN CILEXETIL [Concomitant]
     Indication: HYPERTENSION
     Dosage: UNK UNK, UNK
     Route: 048
     Dates: start: 20070424
  2. MAGMIN [Concomitant]
     Indication: HYPOMAGNESAEMIA
     Dosage: UNK UNK, UNK
     Route: 048
     Dates: start: 20110308
  3. GABAPENTIN [Concomitant]
     Indication: PAIN IN EXTREMITY
     Dosage: UNK
     Route: 048
     Dates: start: 20080115
  4. ACETAMINOPHEN AND CODEINE PHOSPHATE [Concomitant]
     Indication: PAIN
     Dosage: UNK
     Route: 048
     Dates: start: 20050212
  5. AMITRIPTYLINE HCL [Concomitant]
     Indication: PAIN
     Dosage: UNK
     Route: 048
     Dates: start: 20100408
  6. FENTANYL-100 [Concomitant]
     Indication: PAIN
     Dosage: UNK
     Route: 050
     Dates: start: 20101119
  7. CLOTRIMAZOLE [Concomitant]
     Indication: CANDIDIASIS
     Dosage: UNK UNK, UNK
     Route: 061
     Dates: start: 20101230
  8. AUGMENTIN '125' [Concomitant]
     Indication: INFECTION
     Dosage: UNK
     Route: 048
     Dates: start: 20100504
  9. NEXIUM [Concomitant]
     Indication: GASTROOESOPHAGEAL REFLUX DISEASE
     Dosage: UNK
     Route: 048
     Dates: start: 20100408
  10. CETIRIZINE HCL [Concomitant]
     Indication: PRURITUS
     Dosage: UNK
     Route: 048
     Dates: start: 20101230
  11. MAGNESIUM SULFATE [Concomitant]
     Indication: HYPOMAGNESAEMIA
     Dosage: 10 MMOL, ONE TIME DOSE
     Route: 042
     Dates: start: 20110503, end: 20110503
  12. IMODIUM [Concomitant]
     Indication: DIARRHOEA
     Dosage: UNK
     Route: 048
     Dates: start: 20110423
  13. PRAMIPEXOLE DIHYDROCHLORIDE [Concomitant]
     Indication: RESTLESS LEGS SYNDROME
     Dosage: UNK
     Route: 048
     Dates: start: 20091215
  14. MINOCYCLINE HCL [Concomitant]
     Indication: DERMATITIS ACNEIFORM
     Route: 048
     Dates: start: 20110208
  15. QV [Concomitant]
     Indication: DRY SKIN
     Dosage: UNK
     Route: 061
     Dates: start: 20110308
  16. CIPROFLOXACIN [Concomitant]
     Indication: INFECTION
     Dosage: UNK
     Route: 048
     Dates: start: 20100504
  17. PAROXETINE HCL [Concomitant]
     Indication: DEPRESSION
     Dosage: UNK
     Route: 048
     Dates: start: 20091217
  18. OXYCODONE HCL [Concomitant]
     Indication: PAIN
     Dosage: UNK
     Route: 048
     Dates: start: 20081031
  19. PANITUMUMAB [Suspect]
     Indication: COLORECTAL CANCER
     Dosage: 588 MG, UNK
     Dates: start: 20101130

REACTIONS (1)
  - ATRIAL FIBRILLATION [None]
